FAERS Safety Report 4405014-3 (Version None)
Quarter: 2004Q3

REPORT INFORMATION
  Report Type: 
  Country: None (occurrence: None)
  Receive Date: 20040716
  Receipt Date: 20040706
  Transmission Date: 20050211
  Serious: Yes (Life-Threatening, Hospitalization)
  Sender: FDA-Public Use
  Company Number: 207678

PATIENT
  Age: 60 Year
  Sex: Female
  Weight: 130 kg

DRUGS (9)
  1. ACTIVASE [Suspect]
     Indication: ISCHAEMIC STROKE
     Dosage: 109 ML, SINGLE, INTRAVENOUS
     Route: 042
     Dates: start: 20040604, end: 20040604
  2. EPTIFIBATIDE(EPTIFIBATIDE) [Suspect]
     Indication: ISCHAEMIC STROKE
     Dosage: 13.8 ML,
     Dates: start: 20040604
  3. SYNTHROID [Concomitant]
  4. LIPITOR [Concomitant]
  5. ATENOLOL [Concomitant]
  6. AMLODIPINE (AMLODIPINE BESYLATE) [Concomitant]
  7. HCTZ/TRIAMTERE (HYDROCHLOROTHIAZIDE, TRIAMTERENE) [Concomitant]
  8. ATORVASTATIN (ATORVASTATIN CALCIUM) [Concomitant]
  9. RONDEC (CARBINOXAMINE MALEATE, PSEUDOEPHEDRINE HYDROCHLORIDE) [Concomitant]

REACTIONS (16)
  - AGITATION [None]
  - ASTHENIA [None]
  - ATHEROSCLEROSIS [None]
  - CAROTID ARTERY OCCLUSION [None]
  - HEADACHE [None]
  - HEMIANOPIA [None]
  - HYPOTENSION [None]
  - HYPOTONIA [None]
  - LETHARGY [None]
  - NAUSEA [None]
  - OXYGEN SATURATION DECREASED [None]
  - RESTLESSNESS [None]
  - SENSORY LOSS [None]
  - SINUSITIS [None]
  - VASCULAR CALCIFICATION [None]
  - VOMITING [None]
